FAERS Safety Report 13480242 (Version 1)
Quarter: 2017Q2

REPORT INFORMATION
  Report Type: Spontaneous
  Country: US (occurrence: US)
  Receive Date: 20170425
  Receipt Date: 20170425
  Transmission Date: 20170830
  Serious: Yes (Life-Threatening, Hospitalization, Other)
  Sender: FDA-Public Use
  Company Number: US-ELI_LILLY_AND_COMPANY-US201704008191

PATIENT
  Age: 49 Year
  Sex: Male

DRUGS (16)
  1. FENTANYL. [Concomitant]
     Active Substance: FENTANYL
     Indication: SEDATION
     Dosage: UNK, UNKNOWN
     Route: 065
  2. KETAMINE [Concomitant]
     Active Substance: KETAMINE
     Indication: ANALGESIC THERAPY
     Dosage: UNK UNK, EVERY HOUR
     Route: 065
  3. QUETIAPINE. [Suspect]
     Active Substance: QUETIAPINE
     Indication: DELIRIUM
     Dosage: 25 MG, UNKNOWN
     Route: 065
  4. HALOPERIDOL. [Suspect]
     Active Substance: HALOPERIDOL
     Dosage: 10 MG, UNKNOWN
     Route: 042
  5. GABAPENTIN. [Concomitant]
     Active Substance: GABAPENTIN
     Indication: ANALGESIC THERAPY
     Dosage: UNK, QD
     Route: 065
  6. OLANZAPINE. [Suspect]
     Active Substance: OLANZAPINE
     Indication: DELIRIUM
     Dosage: 5 MG, UNKNOWN
     Route: 065
  7. HALOPERIDOL. [Suspect]
     Active Substance: HALOPERIDOL
     Indication: DELIRIUM
     Dosage: 5 MG, UNKNOWN
     Route: 042
  8. PROPOFOL. [Concomitant]
     Active Substance: PROPOFOL
     Indication: SEDATION
  9. PROPOFOL. [Concomitant]
     Active Substance: PROPOFOL
     Indication: AGITATION
  10. CLONIDINE. [Concomitant]
     Active Substance: CLONIDINE
     Indication: AGITATION
     Dosage: UNK, EVERY 8 HRS
     Route: 048
  11. OLANZAPINE. [Suspect]
     Active Substance: OLANZAPINE
     Dosage: 10 MG, UNKNOWN
     Route: 065
  12. PROPOFOL. [Concomitant]
     Active Substance: PROPOFOL
     Indication: PROCEDURAL PAIN
     Dosage: UNK, UNKNOWN
     Route: 065
  13. HYDROMORPHONE [Concomitant]
     Active Substance: HYDROMORPHONE
     Indication: ANALGESIC THERAPY
     Dosage: UNK, PRN
     Route: 042
  14. MIDAZOLAM [Concomitant]
     Active Substance: MIDAZOLAM HYDROCHLORIDE
     Indication: AGITATION
     Dosage: UNK, UNKNOWN
     Route: 065
  15. FENTANYL. [Concomitant]
     Active Substance: FENTANYL
     Indication: PROCEDURAL PAIN
  16. OXYCODONE [Concomitant]
     Active Substance: OXYCODONE
     Indication: ANALGESIC THERAPY
     Dosage: UNK, UNKNOWN
     Route: 065

REACTIONS (2)
  - Neuroleptic malignant syndrome [Recovering/Resolving]
  - Electrocardiogram QT prolonged [Recovered/Resolved]
